FAERS Safety Report 4942639-0 (Version None)
Quarter: 2006Q1

REPORT INFORMATION
  Report Type: 
  Country: None (occurrence: None)
  Receive Date: 20060308
  Receipt Date: 20060223
  Transmission Date: 20060701
  Serious: Yes (Other)
  Sender: FDA-Public Use
  Company Number: HQWYE873230JUN05

PATIENT
  Age: 55 Year
  Sex: Female
  Weight: 136.2 kg

DRUGS (3)
  1. PREMPRO [Suspect]
  2. PREMARIN [Suspect]
  3. PROVERA [Suspect]

REACTIONS (8)
  - BREAST CANCER METASTATIC [None]
  - BREAST CANCER STAGE III [None]
  - ENDOMETRIAL HYPERTROPHY [None]
  - LABORATORY TEST ABNORMAL [None]
  - METASTASES TO LYMPH NODES [None]
  - OESTROGEN RECEPTOR ASSAY POSITIVE [None]
  - PAIN [None]
  - PROGESTERONE RECEPTOR ASSAY POSITIVE [None]
